FAERS Safety Report 16783591 (Version 1)
Quarter: 2019Q3

REPORT INFORMATION
  Report Type: Spontaneous
  Country: IT (occurrence: IT)
  Receive Date: 20190907
  Receipt Date: 20190907
  Transmission Date: 20191005
  Serious: Yes (Other)
  Sender: FDA-Public Use
  Company Number: IT-BRISTOL-MYERS SQUIBB COMPANY-BMS-2019-085747

PATIENT
  Age: 26 Year
  Sex: Male

DRUGS (1)
  1. TRIAMCINOLONE ACETONIDE. [Suspect]
     Active Substance: TRIAMCINOLONE ACETONIDE
     Indication: HYPERTROPHIC SCAR
     Dosage: 2 DOSAGE FORM
     Route: 026

REACTIONS (2)
  - Skin atrophy [Unknown]
  - Skin hypopigmentation [Unknown]
